FAERS Safety Report 8731652 (Version 2)
Quarter: 2012Q4

REPORT INFORMATION
  Report Type: 
  Country: NL (occurrence: NL)
  Receive Date: 20120820
  Receipt Date: 20120913
  Transmission Date: 20130627
  Serious: Yes (Other)
  Sender: FDA-Public Use
  Company Number: NL-NOVOPROD-357690

PATIENT
  Age: 35 Year
  Sex: Female
  Weight: 86 kg

DRUGS (3)
  1. VICTOZA [Suspect]
     Indication: TYPE 2 DIABETES MELLITUS
     Dosage: 1.8 mg, qd
     Route: 065
     Dates: start: 20101216, end: 20120725
  2. METFORMIN [Concomitant]
     Dosage: 1000 mg, qd
     Dates: start: 20110726, end: 20120725
  3. GLIMEPIRIDE [Concomitant]
     Dosage: 6 mg, qd
     Dates: start: 20101216, end: 20120727

REACTIONS (2)
  - Abortion spontaneous [Recovered/Resolved]
  - Exposure during pregnancy [Recovered/Resolved]
